FAERS Safety Report 18323907 (Version 2)
Quarter: 2020Q4

REPORT INFORMATION
  Report Type: Spontaneous
  Country: FR (occurrence: FR)
  Receive Date: 20200929
  Receipt Date: 20201008
  Transmission Date: 20210113
  Serious: Yes (Other)
  Sender: FDA-Public Use
  Company Number: FR-US-PROVELL PHARMACEUTICALS LLC-E2B_90080288

PATIENT
  Sex: Female

DRUGS (2)
  1. LEVOTHYROX 100 [Suspect]
     Active Substance: LEVOTHYROXINE SODIUM
     Dates: start: 2017
  2. LEVOTHYROX 100 [Suspect]
     Active Substance: LEVOTHYROXINE SODIUM
     Indication: PRODUCT USED FOR UNKNOWN INDICATION

REACTIONS (10)
  - Fluid retention [Recovering/Resolving]
  - Eye irritation [Recovering/Resolving]
  - Burning sensation [Recovering/Resolving]
  - Alopecia [Recovering/Resolving]
  - Insomnia [Recovering/Resolving]
  - Generalised oedema [Recovering/Resolving]
  - Hyperphagia [Recovering/Resolving]
  - Loss of consciousness [Recovering/Resolving]
  - Dyspepsia [Recovering/Resolving]
  - Weight increased [Recovering/Resolving]
